FAERS Safety Report 25740660 (Version 1)
Quarter: 2025Q3

REPORT INFORMATION
  Report Type: Spontaneous
  Country: US (occurrence: US)
  Receive Date: 20250829
  Receipt Date: 20250829
  Transmission Date: 20251020
  Serious: No
  Sender: SANOFI AVENTIS
  Company Number: US-SANOFI-02636120

PATIENT
  Age: 39 Year
  Sex: Male

DRUGS (2)
  1. DUPIXENT [Suspect]
     Active Substance: DUPILUMAB
     Indication: Dermatitis atopic
     Dosage: 300 MG, QOW
     Route: 065
     Dates: start: 20250825
  2. DUPIXENT [Suspect]
     Active Substance: DUPILUMAB
     Indication: Eczema

REACTIONS (5)
  - Flushing [Unknown]
  - Neck pain [Not Recovered/Not Resolved]
  - Ear discomfort [Unknown]
  - Headache [Not Recovered/Not Resolved]
  - Dry eye [Unknown]

NARRATIVE: CASE EVENT DATE: 20250801
